FAERS Safety Report 24607223 (Version 1)
Quarter: 2024Q4

REPORT INFORMATION
  Report Type: Spontaneous
  Country: US (occurrence: None)
  Receive Date: 20241110
  Receipt Date: 20241110
  Transmission Date: 20250115
  Serious: Yes (Life-Threatening, Other)
  Sender: Public
  Company Number: None

PATIENT
  Age: 53 Year
  Sex: Female
  Weight: 45 kg

DRUGS (2)
  1. TETRACYCLINE [Suspect]
     Active Substance: TETRACYCLINE
     Indication: Sexual transmission of infection
     Dosage: 4 TIMES  DAY ORL ?
     Route: 048
     Dates: start: 20241108, end: 20241110
  2. non [Concomitant]

REACTIONS (5)
  - Pyrexia [None]
  - Nausea [None]
  - Vomiting [None]
  - Cough [None]
  - Drug ineffective [None]

NARRATIVE: CASE EVENT DATE: 20241109
